FAERS Safety Report 6854513-3 (Version None)
Quarter: 2010Q3

REPORT INFORMATION
  Report Type: 
  Country: None (occurrence: None)
  Receive Date: 20100717
  Receipt Date: 20080212
  Transmission Date: 20110219
  Serious: Yes (Other)
  Sender: FDA-Public Use
  Company Number: US-PFIZER INC-2007103288

PATIENT
  Sex: Female
  Weight: 154.54 kg

DRUGS (13)
  1. CHANTIX [Suspect]
     Indication: SMOKING CESSATION THERAPY
     Dates: start: 20071127, end: 20071129
  2. FLUOXETINE HCL [Concomitant]
  3. CLONIDINE [Concomitant]
  4. CLONAZEPAM [Concomitant]
  5. PROTONIX [Concomitant]
  6. METFORMIN HCL [Concomitant]
  7. TRAZODONE HYDROCHLORIDE [Concomitant]
  8. ANTIHYPERTENSIVES [Concomitant]
  9. LORATADINE [Concomitant]
  10. LISINOPRIL [Concomitant]
  11. BUPROPION [Concomitant]
  12. LAMICTAL [Concomitant]
  13. OMEPRAZOLE [Concomitant]

REACTIONS (7)
  - CHILLS [None]
  - DYSPHAGIA [None]
  - DYSPNOEA [None]
  - HYPERSENSITIVITY [None]
  - PRURITUS [None]
  - PYREXIA [None]
  - URTICARIA [None]
